FAERS Safety Report 16837904 (Version 3)
Quarter: 2020Q1

REPORT INFORMATION
  Report Type: Report from Study
  Country: JP (occurrence: JP)
  Receive Date: 20190923
  Receipt Date: 20200117
  Transmission Date: 20200409
  Serious: Yes (Hospitalization)
  Sender: FDA-Public Use
  Company Number: JP-ROCHE-2410056

PATIENT
  Age: 56 Year
  Sex: Female
  Weight: 45 kg

DRUGS (10)
  1. OXINORM [OXYCODONE HYDROCHLORIDE] [Concomitant]
     Active Substance: OXYCODONE HYDROCHLORIDE
     Indication: NON-SMALL CELL LUNG CANCER
     Dosage: THE DAY OF THE BEGINNING OF DOSAGE FOR THE TON: BEFORE BEGINNING OF THE ?TREATMENT
     Route: 048
  2. OXYCODONE [Concomitant]
     Active Substance: OXYCODONE
     Indication: NON-SMALL CELL LUNG CANCER
     Dosage: THE BEGINNING OF DOSAGE DAY: BEFORE BEGINNING OF THE TREATMENT
     Route: 048
  3. REBAMIPIDE [Concomitant]
     Active Substance: REBAMIPIDE
     Indication: GASTRITIS PROPHYLAXIS
     Dosage: THE BEGINNING OF DOSAGE DAY: BEFORE BEGINNING OF THE TREATMENT
     Route: 048
  4. BEVACIZUMAB. [Suspect]
     Active Substance: BEVACIZUMAB
     Indication: NON-SMALL CELL LUNG CANCER
     Route: 041
     Dates: start: 20190826
  5. ALIMTA [Suspect]
     Active Substance: PEMETREXED DISODIUM
     Indication: NON-SMALL CELL LUNG CANCER
     Route: 041
     Dates: start: 20190826
  6. MAGMITT [Concomitant]
     Active Substance: MAGNESIUM OXIDE
     Indication: CONSTIPATION
     Dosage: THE BEGINNING OF DOSAGE DAY: BEFORE BEGINNING OF THE TREATMENT
     Route: 048
  7. CARBOPLATIN. [Suspect]
     Active Substance: CARBOPLATIN
     Indication: NON-SMALL CELL LUNG CANCER
     Route: 041
     Dates: start: 20190826
  8. PEMETREXED DISODIUM HEPTAHYDRATE [Suspect]
     Active Substance: PEMETREXED
     Indication: NON-SMALL CELL LUNG CANCER
     Route: 041
  9. ATEZOLIZUMAB. [Suspect]
     Active Substance: ATEZOLIZUMAB
     Indication: NON-SMALL CELL LUNG CANCER
     Route: 041
     Dates: start: 20190826
  10. LOXOPROFEN [Concomitant]
     Active Substance: LOXOPROFEN
     Indication: NON-SMALL CELL LUNG CANCER
     Dosage: THE BEGINNING OF DOSAGE DAY: BEFORE BEGINNING OF THE TREATMENT
     Route: 048

REACTIONS (1)
  - Pyrexia [Recovering/Resolving]

NARRATIVE: CASE EVENT DATE: 20190906
